FAERS Safety Report 9171756 (Version 1)
Quarter: 2013Q1

REPORT INFORMATION
  Report Type: Spontaneous
  Country: GB (occurrence: None)
  Receive Date: 20130318
  Receipt Date: 20130318
  Transmission Date: 20140127
  Serious: Yes (Death)
  Sender: FDA-Public Use
  Company Number: 2013084466

PATIENT
  Age: 36 Year
  Sex: Male

DRUGS (1)
  1. FRAGMIN [Suspect]

REACTIONS (3)
  - Pulmonary embolism [None]
  - Coronary artery thrombosis [None]
  - Off label use [None]
